FAERS Safety Report 24260445 (Version 6)
Quarter: 2024Q4

REPORT INFORMATION
  Report Type: Report from Study
  Country: US (occurrence: US)
  Receive Date: 20240828
  Receipt Date: 20241125
  Transmission Date: 20250114
  Serious: Yes (Other)
  Sender: BOEHRINGER INGELHEIM
  Company Number: US-BoehringerIngelheim-2024-BI-047893

PATIENT
  Age: 67 Year
  Sex: Female
  Weight: 45 kg

DRUGS (12)
  1. SPEVIGO [Suspect]
     Active Substance: SPESOLIMAB-SBZO
     Indication: Generalised pustular psoriasis
     Dosage: 4 SYRINGES (600 MG) UNDER THE SKIN AS A ONE-TIME DOSE, THEN INJECT 2 SYRINGES (300 MG) UNDER THE SKI
     Route: 058
     Dates: start: 20240805
  2. SPEVIGO [Suspect]
     Active Substance: SPESOLIMAB-SBZO
     Indication: Psoriasis
  3. GABAPENTIN [Concomitant]
     Active Substance: GABAPENTIN
     Indication: Product used for unknown indication
  4. ZETIA [Concomitant]
     Active Substance: EZETIMIBE
     Indication: Product used for unknown indication
  5. CREON [Concomitant]
     Active Substance: PANCRELIPASE AMYLASE\PANCRELIPASE LIPASE\PANCRELIPASE PROTEASE
     Indication: Product used for unknown indication
  6. CLOPIDOGREL [Concomitant]
     Active Substance: CLOPIDOGREL BISULFATE
     Indication: Product used for unknown indication
  7. ISOSORBIDE DINITRATE [Concomitant]
     Active Substance: ISOSORBIDE DINITRATE
     Indication: Product used for unknown indication
  8. METOPROLOL SUCCINATE [Concomitant]
     Active Substance: METOPROLOL SUCCINATE
     Indication: Product used for unknown indication
  9. CITALOPRAM [Concomitant]
     Active Substance: CITALOPRAM
     Indication: Product used for unknown indication
  10. ESTRADIOL [Concomitant]
     Active Substance: ESTRADIOL
     Indication: Product used for unknown indication
  11. REPAGLINIDE [Concomitant]
     Active Substance: DULOXETINE HYDROCHLORIDE\REPAGLINIDE\TICAGRELOR
     Indication: Product used for unknown indication
  12. RAMIPRIL [Concomitant]
     Active Substance: RAMIPRIL
     Indication: Product used for unknown indication

REACTIONS (5)
  - Generalised pustular psoriasis [Recovering/Resolving]
  - Eczema [Recovering/Resolving]
  - Rash [Unknown]
  - Memory impairment [Recovering/Resolving]
  - Alopecia [Unknown]

NARRATIVE: CASE EVENT DATE: 20240808
